FAERS Safety Report 21695731 (Version 2)
Quarter: 2023Q1

REPORT INFORMATION
  Report Type: Report from Study
  Country: US (occurrence: US)
  Receive Date: 20221207
  Receipt Date: 20230330
  Transmission Date: 20230418
  Serious: No
  Sender: FDA-Public Use
  Company Number: US-ABBVIE-4209700

PATIENT
  Age: 76 Year
  Sex: Female
  Weight: 60.327 kg

DRUGS (1)
  1. RINVOQ [Suspect]
     Active Substance: UPADACITINIB
     Indication: Rheumatoid arthritis
     Route: 048

REACTIONS (3)
  - Influenza [Recovered/Resolved]
  - Influenza [Recovering/Resolving]
  - Nasal congestion [Unknown]

NARRATIVE: CASE EVENT DATE: 20221118
